FAERS Safety Report 12156332 (Version 5)
Quarter: 2018Q1

REPORT INFORMATION
  Report Type: Report from Study
  Country: JP (occurrence: JP)
  Receive Date: 20160307
  Receipt Date: 20180328
  Transmission Date: 20180508
  Serious: Yes (Hospitalization, Other)
  Sender: FDA-Public Use
  Company Number: JP-ELI_LILLY_AND_COMPANY-JP201603001140

PATIENT
  Age: 70 Year
  Sex: Male

DRUGS (5)
  1. CISPLATIN. [Concomitant]
     Active Substance: CISPLATIN
     Indication: HYPOPHARYNGEAL CANCER
     Dosage: UNK, UNKNOWN
     Route: 065
  2. CETUXIMAB. [Suspect]
     Active Substance: CETUXIMAB
     Indication: HYPOPHARYNGEAL CANCER
     Dosage: UNK, UNKNOWN
     Route: 042
     Dates: start: 20150918, end: 20150918
  3. DOCETAXEL. [Concomitant]
     Active Substance: DOCETAXEL
     Indication: HYPOPHARYNGEAL CANCER
     Dosage: UNK, UNKNOWN
     Route: 065
  4. CETUXIMAB. [Suspect]
     Active Substance: CETUXIMAB
     Dosage: 380 UNK, UNK
     Route: 042
     Dates: end: 20151026
  5. 5-FU                               /00098801/ [Concomitant]
     Active Substance: FLUOROURACIL
     Indication: HYPOPHARYNGEAL CANCER
     Dosage: UNK, UNKNOWN
     Route: 065

REACTIONS (3)
  - Mucosal inflammation [Recovering/Resolving]
  - Pneumonia aspiration [Recovering/Resolving]
  - Interstitial lung disease [Recovering/Resolving]

NARRATIVE: CASE EVENT DATE: 20151028
